FAERS Safety Report 9601045 (Version 2)
Quarter: 2013Q4

REPORT INFORMATION
  Report Type: Spontaneous
  Country: US (occurrence: US)
  Receive Date: 20131004
  Receipt Date: 20131004
  Transmission Date: 20140711
  Serious: No
  Sender: FDA-Public Use
  Company Number: US-AMGEN-USASP2013036655

PATIENT
  Age: 60 Year
  Sex: Female
  Weight: 63.49 kg

DRUGS (23)
  1. ENBREL [Suspect]
     Indication: RHEUMATOID ARTHRITIS
     Dosage: UNK UNK, QWK
     Dates: start: 2011
  2. ALLEGRA [Concomitant]
     Dosage: UNK
  3. BIOTIN [Concomitant]
     Dosage: UNK
  4. BUDESONIDE [Concomitant]
     Dosage: UNK
  5. CYMBALTA [Concomitant]
     Dosage: UNK
  6. FISH OIL [Concomitant]
     Dosage: UNK
  7. FOLIC ACID [Concomitant]
     Dosage: UNK
  8. IBUPROFEN [Concomitant]
     Dosage: UNK
  9. LORTAB                             /00917501/ [Concomitant]
     Dosage: UNK
  10. MUCINEX [Concomitant]
     Dosage: UNK
  11. NYSTATIN [Concomitant]
     Dosage: UNK
  12. OCUVITE                            /01053801/ [Concomitant]
     Dosage: UNK
  13. CALTRATE                           /07357001/ [Concomitant]
     Dosage: UNK
  14. VITAMIN E                          /00110501/ [Concomitant]
     Dosage: UNK
  15. VITAMIN D                          /00107901/ [Concomitant]
     Dosage: UNK
  16. TEMAZEPAM [Concomitant]
     Dosage: UNK
  17. PRILOSEC                           /00661201/ [Concomitant]
     Dosage: UNK
  18. PREDNISONE [Concomitant]
     Dosage: UNK
  19. PLAQUENIL                          /00072602/ [Concomitant]
     Dosage: UNK
  20. LIPITOR [Concomitant]
     Dosage: UNK
  21. MAGNESIUM [Concomitant]
     Dosage: UNK
  22. MULTIVITAMIN                       /00097801/ [Concomitant]
     Dosage: UNK
  23. CALCIUM PLUS                       /00751501/ [Concomitant]
     Dosage: UNK

REACTIONS (2)
  - Drug ineffective [Unknown]
  - Condition aggravated [Not Recovered/Not Resolved]
